FAERS Safety Report 18978348 (Version 1)
Quarter: 2021Q1

REPORT INFORMATION
  Report Type: Spontaneous
  Country: US (occurrence: US)
  Receive Date: 20210307
  Receipt Date: 20210307
  Transmission Date: 20210420
  Serious: No
  Sender: FDA-Public Use
  Company Number: US-PERRIGO-21US001452

PATIENT
  Sex: Female

DRUGS (2)
  1. DICLOFENAC SODIUM. [Suspect]
     Active Substance: DICLOFENAC SODIUM
     Indication: ARTHRALGIA
     Dosage: UNKNOWN, UNKNOWN
     Route: 061
  2. VACCINES [Suspect]
     Active Substance: UNSPECIFIED INGREDIENT
     Indication: COVID-19 IMMUNISATION
     Dosage: UNKNOWN, UNKNOWN
     Route: 065

REACTIONS (2)
  - Product administered at inappropriate site [Recovered/Resolved]
  - Application site rash [Unknown]

NARRATIVE: CASE EVENT DATE: 202101
